FAERS Safety Report 15336791 (Version 1)
Quarter: 2018Q3

REPORT INFORMATION
  Report Type: Spontaneous
  Country: JP (occurrence: JP)
  Receive Date: 20180831
  Receipt Date: 20180831
  Transmission Date: 20181010
  Serious: Yes (Other)
  Sender: FDA-Public Use
  Company Number: JP-UCBSA-2018037877

PATIENT
  Age: 2 Decade
  Sex: Female

DRUGS (2)
  1. E KEPPRA [Suspect]
     Active Substance: LEVETIRACETAM
     Indication: OFF LABEL USE
     Dosage: 1000 MG, DAILY
     Route: 048
  2. E KEPPRA [Suspect]
     Active Substance: LEVETIRACETAM
     Indication: JUVENILE MYOCLONIC EPILEPSY
     Dosage: 750 MG, 2X/DAY (BID)
     Route: 048

REACTIONS (6)
  - Generalised tonic-clonic seizure [Unknown]
  - Somnolence [Recovering/Resolving]
  - Drug dose omission [Unknown]
  - Incontinence [Unknown]
  - Mood altered [Recovering/Resolving]
  - Off label use [Unknown]
